FAERS Safety Report 20307425 (Version 2)
Quarter: 2022Q1

REPORT INFORMATION
  Report Type: Other
  Country: RO (occurrence: RO)
  Receive Date: 20220107
  Receipt Date: 20220121
  Transmission Date: 20220423
  Serious: Yes (Other)
  Sender: FDA-Public Use
  Company Number: RO-CELLTRION INC.-2021RO018009

PATIENT

DRUGS (12)
  1. RITUXIMAB [Suspect]
     Active Substance: RITUXIMAB
     Indication: Follicular lymphoma
     Dosage: 8 COURSES
     Route: 065
     Dates: start: 201807
  2. RITUXIMAB [Suspect]
     Active Substance: RITUXIMAB
     Dosage: 2 COURSES
     Route: 065
  3. OBINUTUZUMAB [Suspect]
     Active Substance: OBINUTUZUMAB
     Indication: Follicular lymphoma
     Dosage: STARTING MAINTENANCE TREATMENT
     Route: 042
     Dates: start: 202101
  4. OBINUTUZUMAB [Suspect]
     Active Substance: OBINUTUZUMAB
     Dosage: 6 COURSES
     Route: 042
  5. CISPLATIN [Concomitant]
     Active Substance: CISPLATIN
  6. VINCRISTINE [Concomitant]
     Active Substance: VINCRISTINE
  7. PREDNISONE [Concomitant]
     Active Substance: PREDNISONE
  8. DEXAMETHASONE [Concomitant]
     Active Substance: DEXAMETHASONE
  9. DOXORUBICIN [Concomitant]
     Active Substance: DOXORUBICIN
  10. BENDAMUSTINE [Concomitant]
     Active Substance: BENDAMUSTINE
  11. CYTARABINE [Concomitant]
     Active Substance: CYTARABINE
  12. CYCLOPHOSPHAMIDE [Concomitant]
     Active Substance: CYCLOPHOSPHAMIDE

REACTIONS (1)
  - Follicular lymphoma [Unknown]

NARRATIVE: CASE EVENT DATE: 20190101
